FAERS Safety Report 9480092 (Version 1)
Quarter: 2013Q3

REPORT INFORMATION
  Report Type: Spontaneous
  Country: US (occurrence: US)
  Receive Date: 20130828
  Receipt Date: 20130828
  Transmission Date: 20140515
  Serious: Yes (Hospitalization)
  Sender: FDA-Public Use
  Company Number: US-AMGEN-KDL062965

PATIENT
  Age: 54 Year
  Sex: Female

DRUGS (2)
  1. ENBREL [Suspect]
     Indication: RHEUMATOID ARTHRITIS
     Dosage: 25 MG, QOD
     Route: 058
     Dates: start: 20020201
  2. METHOTREXATE [Concomitant]

REACTIONS (7)
  - Sepsis [Unknown]
  - Arthritis infective [Unknown]
  - Platelet count decreased [Unknown]
  - Coagulopathy [Unknown]
  - Musculoskeletal discomfort [Unknown]
  - Muscular weakness [Unknown]
  - Local swelling [None]
